FAERS Safety Report 9242499 (Version 7)
Quarter: 2015Q1

REPORT INFORMATION
  Report Type: Spontaneous
  Country: NO (occurrence: NO)
  Receive Date: 20130419
  Receipt Date: 20150107
  Transmission Date: 20150721
  Serious: Yes (Other)
  Sender: FDA-Public Use
  Company Number: NO-PFIZER INC-2013119314

PATIENT
  Age: 44 Year
  Sex: Female

DRUGS (8)
  1. ZIPRASIDONE HCL [Suspect]
     Active Substance: ZIPRASIDONE HYDROCHLORIDE
     Indication: SCHIZOAFFECTIVE DISORDER
     Dosage: UNK
  2. LITHIUM [Suspect]
     Active Substance: LITHIUM CARBONATE
     Indication: SCHIZOAFFECTIVE DISORDER
     Dosage: UNK
  3. QUETIAPINE FUMARATE. [Suspect]
     Active Substance: QUETIAPINE FUMARATE
     Indication: SCHIZOAFFECTIVE DISORDER
     Dosage: 1800 MG, A DAY
  4. CHLORPROTIXEN [Concomitant]
     Indication: SCHIZOAFFECTIVE DISORDER
     Dosage: 25 MG X2
  5. ZOPICLONE [Concomitant]
     Active Substance: ZOPICLONE
     Indication: SCHIZOAFFECTIVE DISORDER
     Dosage: 7.5 MG, 1X/DAY IN THE EVENING
  6. LORAZEPAM. [Concomitant]
     Active Substance: LORAZEPAM
     Indication: SCHIZOAFFECTIVE DISORDER
     Dosage: UNK, DAILY
  7. CLOZAPINE. [Suspect]
     Active Substance: CLOZAPINE
     Indication: SCHIZOAFFECTIVE DISORDER
     Dosage: UNK
  8. ALIMEMAZINE [Concomitant]
     Active Substance: TRIMEPRAZINE
     Indication: SCHIZOAFFECTIVE DISORDER
     Dosage: 20 MG, 1X/DAY IN THE EVENING

REACTIONS (4)
  - Agranulocytosis [Unknown]
  - Drug level increased [Unknown]
  - Neuroleptic malignant syndrome [Unknown]
  - Drug ineffective [Unknown]
